FAERS Safety Report 7122211-7 (Version None)
Quarter: 2010Q4

REPORT INFORMATION
  Report Type: 
  Country: None (occurrence: None)
  Receive Date: 20101124
  Receipt Date: 20101122
  Transmission Date: 20110411
  Serious: Yes (Hospitalization)
  Sender: FDA-Public Use
  Company Number: GXKR2009DE03134

PATIENT
  Age: 75 Year
  Sex: Female
  Weight: 68 kg

DRUGS (12)
  1. SULFAMETHOXAZOLE AND TRIMETHOPRIM [Suspect]
     Dosage: UNK
     Route: 048
     Dates: start: 20080915, end: 20080916
  2. HYDROCHLOROTHIAZIDE [Suspect]
     Dosage: 25 MG, QD
     Route: 048
     Dates: start: 20080401, end: 20080916
  3. ALENDRONIC ACID [Concomitant]
     Route: 048
  4. AMLODIPINE [Concomitant]
     Route: 048
  5. ACETYLSALICYLIC ACID [Concomitant]
     Route: 048
  6. COLECALCIFEROL [Concomitant]
     Route: 048
  7. INSULIN ACTRAPHAN HUMAN [Concomitant]
     Route: 058
  8. LANTUS [Concomitant]
     Route: 058
  9. METOPROLOL [Concomitant]
     Route: 048
  10. PLAVIX [Concomitant]
     Route: 048
  11. RAMIPRIL [Concomitant]
     Route: 048
  12. SIMVASTATIN [Concomitant]
     Route: 048

REACTIONS (2)
  - HYPONATRAEMIA [None]
  - VOMITING [None]
